FAERS Safety Report 6636285-0 (Version None)
Quarter: 2010Q1

REPORT INFORMATION
  Report Type: 
  Country: None (occurrence: None)
  Receive Date: 20100311
  Receipt Date: 20100301
  Transmission Date: 20100710
  Serious: Yes (Other)
  Sender: FDA-Public Use
  Company Number: 525038

PATIENT
  Age: 4 Year
  Sex: Male

DRUGS (10)
  1. CARBOPLATIN [Suspect]
     Indication: NEUROBLASTOMA
  2. ETOPOSIDE [Concomitant]
     Indication: NEUROBLASTOMA
  3. CISPLATIN [Suspect]
     Indication: NEUROBLASTOMA
  4. DOXORUBICIN HCL [Suspect]
     Indication: NEUROBLASTOMA
  5. CYCLOPHOSPHAMIDE [Suspect]
     Indication: NEUROBLASTOMA
  6. IFOSFAMIDE [Suspect]
     Indication: NEUROBLASTOMA
  7. MELPHALAN HYDROCHLORIDE [Suspect]
     Indication: NEUROBLASTOMA
  8. RETINOIC ACID [Suspect]
     Indication: NEUROBLASTOMA
  9. THIOTEPA [Suspect]
     Indication: NEUROBLASTOMA
  10. TOPOTECAN [Suspect]
     Indication: NEUROBLASTOMA

REACTIONS (5)
  - BLOOD STEM CELL TRANSPLANT FAILURE [None]
  - MALIGNANT NEOPLASM PROGRESSION [None]
  - MULTI-ORGAN FAILURE [None]
  - MYELOID LEUKAEMIA [None]
  - VENOOCCLUSIVE LIVER DISEASE [None]
